FAERS Safety Report 19509948 (Version 2)
Quarter: 2021Q3

REPORT INFORMATION
  Report Type: Spontaneous
  Country: US (occurrence: US)
  Receive Date: 20210709
  Receipt Date: 20210908
  Transmission Date: 20211014
  Serious: No
  Sender: FDA-Public Use
  Company Number: US-APOTEX-2021AP014482

PATIENT
  Sex: Male

DRUGS (1)
  1. FLUVOXAMINE MALEATE TABLETS [Suspect]
     Active Substance: FLUVOXAMINE MALEATE
     Indication: PRODUCT USED FOR UNKNOWN INDICATION
     Dosage: COMPLAINT MATERIAL?68182, PACK SIZE?100 BTL
     Route: 065

REACTIONS (2)
  - Product substitution issue [Unknown]
  - Product odour abnormal [Unknown]
